FAERS Safety Report 5360458-0 (Version None)
Quarter: 2007Q2

REPORT INFORMATION
  Report Type: 
  Country: None (occurrence: None)
  Receive Date: 20070614
  Receipt Date: 20070531
  Transmission Date: 20071010
  Serious: Yes (Other)
  Sender: FDA-Public Use
  Company Number: 2007S1004793

PATIENT
  Age: 64 Year
  Sex: Female
  Weight: 67.1324 kg

DRUGS (3)
  1. ALLOPURINOL [Suspect]
     Indication: GOUT
     Dosage: 300 MG; DAILY, ORAL
     Route: 048
     Dates: start: 20040101, end: 20070401
  2. SPIRONOLACTONE [Suspect]
     Indication: OEDEMA
     Dosage: 50 MG; DAILY; ORAL
     Route: 048
     Dates: start: 20040101, end: 20070401
  3. PREMARIN [Concomitant]

REACTIONS (3)
  - DRUG INEFFECTIVE [None]
  - NEURALGIA [None]
  - OEDEMA PERIPHERAL [None]
